FAERS Safety Report 10619679 (Version 4)
Quarter: 2015Q1

REPORT INFORMATION
  Report Type: Spontaneous
  Country: BR (occurrence: BR)
  Receive Date: 20141202
  Receipt Date: 20150129
  Transmission Date: 20150720
  Serious: Yes (Other)
  Sender: FDA-Public Use
  Company Number: BR-BRISTOL-MYERS SQUIBB COMPANY-21621578

PATIENT
  Age: 24 Year
  Sex: Female
  Weight: 99 kg

DRUGS (8)
  1. FRISIUM [Concomitant]
     Active Substance: CLOBAZAM
  2. BUDESONIDE + FORMOTEROL FUMARATE [Suspect]
     Active Substance: BUDESONIDE\FORMOTEROL FUMARATE
     Indication: RESPIRATORY RATE DECREASED
     Dosage: 1DF=160/4.5 MCG.
     Route: 065
     Dates: start: 20141024
  3. METFORMIN HYDROCHLORIDE. [Suspect]
     Active Substance: METFORMIN HYDROCHLORIDE
     Indication: INSULIN RESISTANCE
     Dosage: 500 MG, QD
     Route: 048
  4. CRANBERRY. [Concomitant]
     Active Substance: CRANBERRY
  5. GARDENAL [Concomitant]
     Active Substance: PHENOBARBITAL
  6. LACTULONA [Concomitant]
     Indication: CONSTIPATION
  7. URSACOL [Concomitant]
     Active Substance: URSODIOL
     Indication: CHOLELITHIASIS
  8. AVAMYS [Concomitant]
     Active Substance: FLUTICASONE FUROATE

REACTIONS (7)
  - Epilepsy [Recovering/Resolving]
  - Polymenorrhoea [Recovered/Resolved]
  - Escherichia urinary tract infection [Recovered/Resolved]
  - Menorrhagia [Recovered/Resolved]
  - Oxygen saturation decreased [Recovered/Resolved]
  - Tachycardia [Recovered/Resolved]
  - Off label use [Not Recovered/Not Resolved]

NARRATIVE: CASE EVENT DATE: 201405
